FAERS Safety Report 6485667-9 (Version None)
Quarter: 2009Q4

REPORT INFORMATION
  Report Type: 
  Country: None (occurrence: None)
  Receive Date: 20091209
  Receipt Date: 20091124
  Transmission Date: 20100525
  Serious: Yes (Hospitalization)
  Sender: FDA-Public Use
  Company Number: IT-GENENTECH-295537

PATIENT
  Sex: Male

DRUGS (7)
  1. MABTHERA [Suspect]
     Indication: NON-HODGKIN'S LYMPHOMA
     Dosage: 690 MG, UNK
     Route: 042
     Dates: start: 20090511, end: 20090720
  2. ENDOXAN [Suspect]
     Indication: NON-HODGKIN'S LYMPHOMA
     Dosage: 1380 MG, UNK
     Route: 042
     Dates: start: 20090503, end: 20090720
  3. ADRIBLASTINA [Suspect]
     Indication: NON-HODGKIN'S LYMPHOMA
     Dosage: 90 MG, UNK
     Route: 042
     Dates: start: 20090528, end: 20090720
  4. VINCRISTINA [Suspect]
     Indication: DRUG USE FOR UNKNOWN INDICATION
     Dosage: 1.5 MG, UNK
     Route: 042
     Dates: start: 20090528, end: 20090720
  5. KYTRIL [Concomitant]
     Indication: DRUG USE FOR UNKNOWN INDICATION
     Dosage: UNK
     Route: 065
  6. FLEBOCORTID [Concomitant]
     Indication: DRUG USE FOR UNKNOWN INDICATION
     Dosage: UNK
     Route: 065
  7. TRIMETON [Concomitant]
     Indication: DRUG USE FOR UNKNOWN INDICATION
     Dosage: 10 MG/ML, UNK
     Route: 065

REACTIONS (5)
  - BRONCHOPNEUMOPATHY [None]
  - DYSPNOEA EXERTIONAL [None]
  - HYPERPYREXIA [None]
  - RESPIRATORY FAILURE [None]
  - SEPTIC SHOCK [None]
